FAERS Safety Report 7736855-2 (Version None)
Quarter: 2011Q3

REPORT INFORMATION
  Report Type: 
  Country: None (occurrence: None)
  Receive Date: 20110908
  Receipt Date: 20110829
  Transmission Date: 20111222
  Serious: Yes (Other)
  Sender: FDA-Public Use
  Company Number: PHHY2011IT77837

PATIENT
  Age: 66 Year

DRUGS (4)
  1. MYCOPHENOLATE MOFETIL [Concomitant]
     Indication: RENAL TRANSPLANT
     Dosage: 1000 MG, UNK
  2. CYCLOSPORINE [Suspect]
     Indication: RENAL TRANSPLANT
     Dosage: 125 MG, UNK
  3. PREDNISONE [Concomitant]
     Dosage: 15(10) MG
  4. MYCOPHENOLATE SODIUM [Concomitant]
     Dosage: 720 MG, UNK

REACTIONS (2)
  - METABOLIC ACIDOSIS [None]
  - BLADDER TRANSITIONAL CELL CARCINOMA STAGE I [None]
